FAERS Safety Report 23353277 (Version 2)
Quarter: 2024Q3

REPORT INFORMATION
  Report Type: Spontaneous
  Country: CA (occurrence: CA)
  Receive Date: 20231231
  Receipt Date: 20240803
  Transmission Date: 20241017
  Serious: Yes (Other)
  Sender: AUROBINDO
  Company Number: CA-AUROBINDO-AUR-APL-2023-081033

PATIENT
  Age: 74 Year
  Sex: Female

DRUGS (34)
  1. AMLODIPINE [Suspect]
     Active Substance: AMLODIPINE BESYLATE
     Indication: Insomnia
     Dosage: 1 DOSAGE FORM, ONCE A DAY
     Route: 048
  2. AMLODIPINE [Suspect]
     Active Substance: AMLODIPINE BESYLATE
     Indication: Hypertension
  3. CLONAZEPAM [Suspect]
     Active Substance: CLONAZEPAM
     Indication: Insomnia
     Dosage: 1 DOSAGE FORM
     Route: 048
  4. OMALIZUMAB [Suspect]
     Active Substance: OMALIZUMAB
     Indication: Chronic spontaneous urticaria
     Dosage: 300 MILLIGRAM
     Route: 058
  5. OMALIZUMAB [Suspect]
     Active Substance: OMALIZUMAB
     Dosage: 300 MILLIGRAM
     Route: 058
  6. OMALIZUMAB [Suspect]
     Active Substance: OMALIZUMAB
     Dosage: 300 MILLIGRAM
     Route: 058
  7. OMALIZUMAB [Suspect]
     Active Substance: OMALIZUMAB
     Dosage: 300 MILLIGRAM, 1 EVERY 4 WEEK
     Route: 058
  8. OMALIZUMAB [Suspect]
     Active Substance: OMALIZUMAB
     Dosage: 300 MILLIGRAM, 1 EVERY 4 WEEK
     Route: 058
  9. OMALIZUMAB [Suspect]
     Active Substance: OMALIZUMAB
     Indication: Chronic spontaneous urticaria
     Dosage: 300 MILLIGRAM, 1 EVERY 1 WEEK
     Route: 058
  10. OMALIZUMAB [Suspect]
     Active Substance: OMALIZUMAB
     Dosage: 300 MILLIGRAM, 1 EVERY 1 WEEK
     Route: 058
  11. OMALIZUMAB [Suspect]
     Active Substance: OMALIZUMAB
     Dosage: 300 MILLIGRAM, 1 EVERY 1 WEEK
     Route: 058
  12. OMALIZUMAB [Suspect]
     Active Substance: OMALIZUMAB
     Dosage: 300 MILLIGRAM, 1 EVERY 1 WEEK
     Route: 058
  13. OMALIZUMAB [Suspect]
     Active Substance: OMALIZUMAB
     Dosage: 300 MILLIGRAM, 1 EVERY 4 WEEK
     Route: 058
  14. OMALIZUMAB [Suspect]
     Active Substance: OMALIZUMAB
     Dosage: 300 MILLIGRAM, 1 EVERY 4 WEEK
     Route: 058
  15. OMALIZUMAB [Suspect]
     Active Substance: OMALIZUMAB
     Dosage: 300 MILLIGRAM, 1 EVERY 4 WEEK
     Route: 058
  16. OMALIZUMAB [Suspect]
     Active Substance: OMALIZUMAB
     Dosage: 300 MILLIGRAM, 1 EVERY 4 WEEK
     Route: 058
  17. OMALIZUMAB [Suspect]
     Active Substance: OMALIZUMAB
     Indication: Chronic spontaneous urticaria
     Dosage: 300 MILLIGRAM
     Route: 065
  18. CYMBALTA [Concomitant]
     Active Substance: DULOXETINE HYDROCHLORIDE
     Indication: Depression
     Dosage: 1 DOSAGE FORM, ONCE A DAY
     Route: 048
  19. PREDNISONE [Concomitant]
     Active Substance: PREDNISONE
     Indication: Product used for unknown indication
     Dosage: 1 DOSAGE FORM, ONCE A DAY
     Route: 065
  20. RUPATADINE [Concomitant]
     Active Substance: RUPATADINE
     Indication: Chronic spontaneous urticaria
     Dosage: 3 DOSAGE FORM, 3 TIMES A DAY
     Route: 048
  21. RUPATADINE [Concomitant]
     Active Substance: RUPATADINE
     Dosage: 1 DOSAGE FORM, ONCE A DAY
     Route: 065
  22. RUPATADINE [Concomitant]
     Active Substance: RUPATADINE
     Dosage: 1 DOSAGE FORM, ONCE A DAY
     Route: 065
  23. RUPATADINE [Concomitant]
     Active Substance: RUPATADINE
     Dosage: 1 DOSAGE FORM, 3 TIMES A DAY
     Route: 048
  24. RUPATADINE [Concomitant]
     Active Substance: RUPATADINE
     Dosage: 1 DOSAGE FORM, 3 TIMES A DAY
     Route: 048
  25. TRANDOLAPRIL [Concomitant]
     Active Substance: TRANDOLAPRIL
     Indication: Hypertension
     Dosage: 1 DOSAGE FORM, ONCE A DAY
     Route: 048
  26. TRANDOLAPRIL [Concomitant]
     Active Substance: TRANDOLAPRIL
     Dosage: 1 DOSAGE FORM, ONCE A DAY
     Route: 065
  27. TRANDOLAPRIL [Concomitant]
     Active Substance: TRANDOLAPRIL
     Dosage: 1 DOSAGE FORM, ONCE A DAY
     Route: 048
  28. TRANDOLAPRIL [Concomitant]
     Active Substance: TRANDOLAPRIL
     Dosage: 1 DOSAGE FORM, ONCE A DAY
     Route: 065
  29. TRANDOLAPRIL [Concomitant]
     Active Substance: TRANDOLAPRIL
     Dosage: 1 DOSAGE FORM, ONCE A DAY
     Route: 065
  30. TRANDOLAPRIL [Concomitant]
     Active Substance: TRANDOLAPRIL
     Dosage: 1 DOSAGE FORM, ONCE A DAY
     Route: 065
  31. TRANDOLAPRIL [Concomitant]
     Active Substance: TRANDOLAPRIL
     Dosage: 1 DOSAGE FORM, ONCE A DAY
     Route: 065
  32. DULOXETINE [Concomitant]
     Active Substance: DULOXETINE
     Indication: Product used for unknown indication
     Dosage: UNK
     Route: 065
  33. BILASTINE [Concomitant]
     Active Substance: BILASTINE
     Indication: Product used for unknown indication
     Dosage: 1 DOSAGE FORM, ONCE A DAY
     Route: 065
  34. BILASTINE [Concomitant]
     Active Substance: BILASTINE
     Dosage: 4 DOSAGE FORM, TWO TIMES A DAY
     Route: 065

REACTIONS (11)
  - Erythema [Not Recovered/Not Resolved]
  - Herpes zoster [Unknown]
  - Nasopharyngitis [Unknown]
  - Pain [Not Recovered/Not Resolved]
  - Pruritus [Not Recovered/Not Resolved]
  - Rash [Unknown]
  - Sleep disorder [Unknown]
  - Urticaria [Unknown]
  - Drug ineffective [Not Recovered/Not Resolved]
  - Off label use [Unknown]
  - Product use in unapproved indication [Not Recovered/Not Resolved]
